FAERS Safety Report 7013059-2 (Version None)
Quarter: 2010Q3

REPORT INFORMATION
  Report Type: 
  Country: None (occurrence: None)
  Receive Date: 20100924
  Receipt Date: 20100916
  Transmission Date: 20110219
  Serious: Yes (Hospitalization)
  Sender: FDA-Public Use
  Company Number: KR-PFIZER INC-2010117578

PATIENT
  Age: 63 Year
  Sex: Male
  Weight: 48.5 kg

DRUGS (2)
  1. SUTENE [Suspect]
     Indication: GASTRIC CANCER
     Dosage: 37.5 MG, 1X/DAY
     Dates: start: 20100908, end: 20100914
  2. DOCETAXEL [Suspect]
     Indication: GASTRIC CANCER
     Dosage: 90 MG, EVERY 3 MONTHS
     Dates: start: 20100908, end: 20100908

REACTIONS (1)
  - FEBRILE NEUTROPENIA [None]
